FAERS Safety Report 9069907 (Version 2)
Quarter: 2013Q1

REPORT INFORMATION
  Report Type: Report from Study
  Country: CA (occurrence: CA)
  Receive Date: 20130215
  Receipt Date: 20130225
  Transmission Date: 20140127
  Serious: Yes (Other)
  Sender: FDA-Public Use
  Company Number: CA-JNJFOC-20130204437

PATIENT
  Age: 62 None
  Sex: Female
  Weight: 43 kg

DRUGS (9)
  1. REMICADE [Suspect]
     Indication: CROHN^S DISEASE
     Dosage: 2ND INFUSION
     Route: 042
     Dates: start: 20130206
  2. REMICADE [Suspect]
     Indication: CROHN^S DISEASE
     Dosage: 1ST INFUSION; EVERY 0/2/6 THEN 8 WEEKS
     Route: 042
     Dates: start: 20130110
  3. IMURAN [Concomitant]
     Route: 065
  4. 6MP [Concomitant]
     Route: 065
  5. CODEINE [Concomitant]
     Route: 065
  6. SULFA [Concomitant]
     Route: 065
  7. ASA [Concomitant]
     Route: 065
  8. HYDROCORTISONE [Concomitant]
     Indication: PREMEDICATION
     Dosage: 200 (UNITS UNSPECIFIED)
     Route: 065
  9. BENADRYL [Concomitant]
     Indication: PREMEDICATION
     Dosage: 200 (UNITS UNSPECIFIED)
     Route: 065

REACTIONS (5)
  - Infusion related reaction [Not Recovered/Not Resolved]
  - Dyspnoea [Recovered/Resolved]
  - Muscle spasms [Recovered/Resolved]
  - Respiratory disorder [Recovered/Resolved]
  - Weight fluctuation [Unknown]
